FAERS Safety Report 8970222 (Version 1)
Quarter: 2012Q4

REPORT INFORMATION
  Report Type: 
  Country: US (occurrence: US)
  Receive Date: 20121218
  Receipt Date: 20121218
  Transmission Date: 20130627
  Serious: No
  Sender: FDA-Public Use
  Company Number: US-GLAXOSMITHKLINE-A0957486A

PATIENT
  Age: 65 Year
  Sex: Male

DRUGS (2)
  1. COMMIT [Suspect]
     Indication: EX-TOBACCO USER
  2. COMMIT [Suspect]
     Indication: EX-TOBACCO USER

REACTIONS (3)
  - Headache [Recovered/Resolved]
  - Diarrhoea [Recovered/Resolved]
  - Intentional drug misuse [Recovered/Resolved]
